FAERS Safety Report 6817722-5 (Version None)
Quarter: 2010Q3

REPORT INFORMATION
  Report Type: 
  Country: None (occurrence: None)
  Receive Date: 20100706
  Receipt Date: 20100625
  Transmission Date: 20110219
  Serious: Yes (Other)
  Sender: FDA-Public Use
  Company Number: JP-PFIZER INC-2010079785

PATIENT
  Age: 83 Year
  Sex: Male

DRUGS (5)
  1. VFEND [Suspect]
     Indication: BRONCHOPULMONARY ASPERGILLOSIS
     Dosage: 400 MG, UNK
     Route: 048
     Dates: start: 20100122, end: 20100419
  2. VFEND [Suspect]
     Dosage: 200 MG, UNK
     Route: 048
     Dates: start: 20100420, end: 20100618
  3. MARZULENE S [Concomitant]
     Indication: GASTRITIS
     Dosage: 6 G, UNK
     Route: 048
  4. HOKUNALIN [Concomitant]
     Indication: BRONCHITIS CHRONIC
     Dosage: 2 MG, UNK
  5. FOIPAN [Concomitant]
     Dosage: 300 MG, UNK

REACTIONS (1)
  - HYPOGLYCAEMIC SEIZURE [None]
